FAERS Safety Report 10682622 (Version 3)
Quarter: 2015Q1

REPORT INFORMATION
  Report Type: Spontaneous
  Country: US (occurrence: US)
  Receive Date: 20141230
  Receipt Date: 20150311
  Transmission Date: 20150720
  Serious: Yes (Hospitalization, Other)
  Sender: FDA-Public Use
  Company Number: US-PFIZER INC-2014356100

PATIENT
  Age: 64 Year
  Sex: Male

DRUGS (2)
  1. INLYTA [Suspect]
     Active Substance: AXITINIB
     Dosage: UNK
  2. INLYTA [Suspect]
     Active Substance: AXITINIB
     Indication: RENAL CANCER METASTATIC
     Dosage: 5 MG, 2X/DAY
     Route: 048
     Dates: start: 20141201, end: 20141214

REACTIONS (10)
  - Encephalopathy [Recovered/Resolved]
  - Loss of consciousness [Recovered/Resolved]
  - Respiratory tract infection [Unknown]
  - Weight decreased [Unknown]
  - Haemorrhage [Recovered/Resolved]
  - Metastatic renal cell carcinoma [Unknown]
  - Cough [Not Recovered/Not Resolved]
  - Decreased appetite [Unknown]
  - Arthralgia [Unknown]
  - Disease progression [Unknown]

NARRATIVE: CASE EVENT DATE: 20141216
